FAERS Safety Report 4422933-2 (Version None)
Quarter: 2004Q3

REPORT INFORMATION
  Report Type: 
  Country: None (occurrence: None)
  Receive Date: 20040806
  Receipt Date: 20040727
  Transmission Date: 20050211
  Serious: Yes (Death)
  Sender: FDA-Public Use
  Company Number: US-JNJFOC-20040604330

PATIENT
  Age: 23 Year
  Sex: Male

DRUGS (6)
  1. DURAGESIC [Suspect]
     Dosage: 75 UG/HR, ORAL
     Route: 048
     Dates: start: 20040117, end: 20040117
  2. HYDROCODONE (HYDROCODONE) TABLETS [Suspect]
     Indication: PAIN
     Dosage: 5/500
  3. ATROPINE [Concomitant]
  4. PAXIL [Concomitant]
  5. XANAX [Concomitant]
  6. MARIJUANA (CANNABIS) [Concomitant]

REACTIONS (4)
  - ACCIDENT [None]
  - DRUG TOXICITY [None]
  - MEDICATION ERROR [None]
  - SELF-MEDICATION [None]
